FAERS Safety Report 15839141 (Version 1)
Quarter: 2019Q1

REPORT INFORMATION
  Report Type: Report from Study
  Country: DE (occurrence: DE)
  Receive Date: 20190117
  Receipt Date: 20190117
  Transmission Date: 20190417
  Serious: Yes (Death, Hospitalization)
  Sender: FDA-Public Use
  Company Number: DE-PURDUE PHARMA-GBR-2018-0053159

PATIENT
  Age: 44 Year
  Sex: Female
  Weight: 65 kg

DRUGS (49)
  1. LAXOBERAL [Concomitant]
     Active Substance: SODIUM PICOSULFATE
     Indication: MALIGNANT MELANOMA
     Dosage: 20 DROP, PRN (20 DRP, PRN)
     Route: 048
     Dates: start: 20180516
  2. DEXAMETHASONE. [Concomitant]
     Active Substance: DEXAMETHASONE
     Dosage: 4 MG, QD
     Route: 048
     Dates: start: 20171129
  3. PREGABALIN. [Concomitant]
     Active Substance: PREGABALIN
     Dosage: 75 MG, QD
     Route: 048
     Dates: start: 20170829, end: 20170905
  4. PREGABALIN. [Concomitant]
     Active Substance: PREGABALIN
     Indication: PRODUCT USED FOR UNKNOWN INDICATION
     Dosage: 100 MG, DAILY (100 MG, QD)
     Dates: start: 20180225
  5. LAXOBERAL [Concomitant]
     Active Substance: SODIUM PICOSULFATE
     Dosage: 20 GTT, QD
     Route: 048
     Dates: start: 20170407
  6. MOVICOL [Concomitant]
     Active Substance: POLYETHYLENE GLYCOL 3350\POTASSIUM CHLORIDE\SODIUM BICARBONATE\SODIUM CHLORIDE
     Indication: PRODUCT USED FOR UNKNOWN INDICATION
     Dosage: 13.81 G, DAILY (13.81 G, QD)
     Route: 048
     Dates: start: 20170829, end: 20171128
  7. BETAHISTIN                         /00141802/ [Concomitant]
     Active Substance: BETAHISTINE HYDROCHLORIDE
     Indication: PRODUCT USED FOR UNKNOWN INDICATION
     Dosage: 6 MG, BID
     Route: 048
     Dates: start: 20180226, end: 20180226
  8. ZOFRAN [Concomitant]
     Active Substance: ONDANSETRON HYDROCHLORIDE
     Dosage: 4 MG, QD
     Route: 048
     Dates: start: 20180303, end: 20180303
  9. DEXAMETHASONE. [Concomitant]
     Active Substance: DEXAMETHASONE
     Dosage: 8 MG, QD
     Route: 042
     Dates: start: 20180225, end: 20180225
  10. DEXAMETHASONE. [Concomitant]
     Active Substance: DEXAMETHASONE
     Dosage: 4 MG, QD
     Route: 048
     Dates: start: 20170829, end: 20171128
  11. MCP [Concomitant]
     Active Substance: METOCLOPRAMIDE HYDROCHLORIDE
     Indication: MALIGNANT MELANOMA
     Dosage: 10 MG, DAILY (10 MG, TID)
     Route: 048
     Dates: start: 20180228, end: 20180303
  12. BETAHISTIN                         /00141802/ [Concomitant]
     Active Substance: BETAHISTINE HYDROCHLORIDE
     Dosage: 6 MG, TID
     Route: 048
     Dates: start: 20180225, end: 20180225
  13. BISACODYL. [Concomitant]
     Active Substance: BISACODYL
     Indication: PRODUCT USED FOR UNKNOWN INDICATION
     Dosage: 15 DRP, QD
     Route: 048
     Dates: start: 20180225, end: 20180303
  14. ZOFRAN [Concomitant]
     Active Substance: ONDANSETRON HYDROCHLORIDE
     Dosage: 8 MG, PRN
     Route: 048
  15. ZOFRAN [Concomitant]
     Active Substance: ONDANSETRON HYDROCHLORIDE
     Dosage: 8 MG, PRN (8 MG, PRN)
     Route: 048
     Dates: start: 20170308
  16. HYDROMORPHONE HYDROCHLORIDE. [Suspect]
     Active Substance: HYDROMORPHONE HYDROCHLORIDE
     Dosage: 8 MG, DAILY (8 MG, QD)
     Route: 048
     Dates: start: 20180225, end: 20180225
  17. IBUPROFEN. [Concomitant]
     Active Substance: IBUPROFEN
     Indication: MALIGNANT MELANOMA
     Dosage: 600 MG, QD
     Route: 048
     Dates: start: 20170214, end: 20170406
  18. PANTOPRAZOLE [Concomitant]
     Active Substance: PANTOPRAZOLE
     Indication: MALIGNANT MELANOMA
     Dosage: 40 MG, QD
     Route: 048
     Dates: start: 20170829
  19. MCP [Concomitant]
     Active Substance: METOCLOPRAMIDE HYDROCHLORIDE
     Dosage: 5 MG, DAILY (5 MG, BID)
     Route: 048
     Dates: start: 20180226, end: 20180226
  20. PREGABALIN. [Concomitant]
     Active Substance: PREGABALIN
     Indication: DEPRESSED MOOD
     Dosage: 75 MG, BID
     Route: 048
     Dates: start: 20180225
  21. BIFITERAL [Concomitant]
     Active Substance: LACTULOSE
     Dosage: 10 G, QD
     Route: 048
     Dates: start: 20180225, end: 20180225
  22. DEXAMETHASONE. [Concomitant]
     Active Substance: DEXAMETHASONE
     Indication: MALIGNANT MELANOMA
     Dosage: 4 MG, BID
     Route: 048
     Dates: start: 20180304, end: 20180318
  23. CIPRALEX [Concomitant]
     Active Substance: ESCITALOPRAM OXALATE
     Indication: DEPRESSION
     Dosage: 10 MG, QD
     Route: 048
     Dates: start: 20180312
  24. BIFITERAL [Concomitant]
     Active Substance: LACTULOSE
     Indication: PRODUCT USED FOR UNKNOWN INDICATION
     Dosage: 10 G, QD
     Route: 048
     Dates: start: 20180312
  25. ZOFRAN [Concomitant]
     Active Substance: ONDANSETRON HYDROCHLORIDE
     Indication: MALIGNANT MELANOMA
     Dosage: 8 MG, TID
     Route: 048
     Dates: start: 20180312
  26. ZOFRAN [Concomitant]
     Active Substance: ONDANSETRON HYDROCHLORIDE
     Dosage: 8 MG, BID
     Route: 048
     Dates: start: 20161115, end: 20170307
  27. DEXAMETHASONE. [Concomitant]
     Active Substance: DEXAMETHASONE
     Indication: INTRACRANIAL PRESSURE INCREASED
     Dosage: 4 MG, TID
     Route: 048
     Dates: start: 20180302, end: 20180303
  28. DEXAMETHASONE. [Concomitant]
     Active Substance: DEXAMETHASONE
     Dosage: 8 MG, TID
     Route: 042
     Dates: start: 20180226, end: 20180301
  29. DEXAMETHASONE. [Concomitant]
     Active Substance: DEXAMETHASONE
     Dosage: 20 MG, DAILY (20 MG, QD)
     Route: 042
     Dates: start: 20180225, end: 20180225
  30. TILIDIN [Concomitant]
     Active Substance: NALOXONE HYDROCHLORIDE\TILIDINE HYDROCHLORIDE
     Indication: PRODUCT USED FOR UNKNOWN INDICATION
     Dosage: 50 MG, PRN
     Route: 048
     Dates: start: 20161115, end: 20170406
  31. CIPRALEX [Concomitant]
     Active Substance: ESCITALOPRAM OXALATE
     Dosage: 100 MG, DAILY (100 MG, QD)
     Route: 048
     Dates: start: 20180302
  32. PREGABALIN. [Concomitant]
     Active Substance: PREGABALIN
     Dosage: 150 MG, QD
     Route: 048
     Dates: start: 20171129
  33. PREGABALIN. [Concomitant]
     Active Substance: PREGABALIN
     Dosage: 75 MG, BID
     Route: 048
     Dates: start: 20170906
  34. IPILIMUMAB [Concomitant]
     Active Substance: IPILIMUMAB
     Indication: MALIGNANT MELANOMA
     Dosage: 3 MG/KG, Q3W
     Route: 042
     Dates: start: 20181024, end: 20181024
  35. ZOFRAN [Concomitant]
     Active Substance: ONDANSETRON HYDROCHLORIDE
     Dosage: 4 MG, TID
     Route: 042
     Dates: start: 20180227, end: 20180302
  36. ZOFRAN [Concomitant]
     Active Substance: ONDANSETRON HYDROCHLORIDE
     Dosage: 4 MG, BID
     Route: 042
     Dates: start: 20180226, end: 20180226
  37. HYDROMORPHONE HYDROCHLORIDE. [Suspect]
     Active Substance: HYDROMORPHONE HYDROCHLORIDE
     Indication: MALIGNANT MELANOMA
     Dosage: 4 MG, TID
     Route: 048
     Dates: start: 20180516
  38. HYDROMORPHONE HYDROCHLORIDE. [Suspect]
     Active Substance: HYDROMORPHONE HYDROCHLORIDE
     Indication: PAIN
     Dosage: 8 MG, TID
     Route: 048
     Dates: start: 20180226
  39. PALLADON [Concomitant]
     Active Substance: HYDROMORPHONE
     Indication: MALIGNANT MELANOMA
     Dosage: 1.3 MG, PRN (UPTO QD AS NEEDED, 2 HOUR MINIMUM IN BETWEEN)
     Route: 048
     Dates: start: 20170407
  40. CIPRALEX [Concomitant]
     Active Substance: ESCITALOPRAM OXALATE
     Dosage: 10 MG, QD
     Route: 048
     Dates: start: 20170518
  41. CLEXANE [Concomitant]
     Active Substance: ENOXAPARIN SODIUM
     Indication: PRODUCT USED FOR UNKNOWN INDICATION
     Dosage: 40 MG, QD
     Route: 058
     Dates: start: 20180226, end: 20180303
  42. CELEBREX [Concomitant]
     Active Substance: CELECOXIB
     Indication: PRODUCT USED FOR UNKNOWN INDICATION
     Dosage: 100 MG, QD
     Route: 048
     Dates: start: 20180302
  43. HYDROMORPHONE HYDROCHLORIDE. [Suspect]
     Active Substance: HYDROMORPHONE HYDROCHLORIDE
     Dosage: 4 MG, TID
     Route: 048
     Dates: start: 20170707, end: 20180224
  44. HYDROMORPHONE HYDROCHLORIDE. [Suspect]
     Active Substance: HYDROMORPHONE HYDROCHLORIDE
     Dosage: 4 MG, BID
     Route: 048
     Dates: start: 20170407, end: 20170706
  45. MCP [Concomitant]
     Active Substance: METOCLOPRAMIDE HYDROCHLORIDE
     Dosage: 5 MG, DAILY (5 MG, TID)
     Route: 048
     Dates: start: 20180227, end: 20180227
  46. MCP [Concomitant]
     Active Substance: METOCLOPRAMIDE HYDROCHLORIDE
     Dosage: 10 MG, TID
     Route: 048
     Dates: start: 20170118
  47. METHOCARBAMOL. [Concomitant]
     Active Substance: METHOCARBAMOL
     Indication: PRODUCT USED FOR UNKNOWN INDICATION
     Dosage: 750 MG, UNK (750 MG, THREE TIMES AS NEEDED)
     Route: 048
     Dates: start: 20180516
  48. ABSTRAL [Concomitant]
     Active Substance: FENTANYL CITRATE
     Indication: MALIGNANT MELANOMA
     Dosage: 200 UG, QID
     Route: 048
     Dates: start: 20180516
  49. ZOFRAN [Concomitant]
     Active Substance: ONDANSETRON HYDROCHLORIDE
     Dosage: 4 MG, QD
     Route: 048
     Dates: start: 20180302, end: 20180302

REACTIONS (5)
  - Malignant neoplasm progression [Fatal]
  - Constipation [Unknown]
  - Intracranial pressure increased [Recovered/Resolved]
  - Metastatic malignant melanoma [Fatal]
  - Abdominal pain [Recovered/Resolved]

NARRATIVE: CASE EVENT DATE: 20170829
